FAERS Safety Report 5508726-3 (Version None)
Quarter: 2007Q4

REPORT INFORMATION
  Report Type: 
  Country: None (occurrence: None)
  Receive Date: 20071107
  Receipt Date: 20071106
  Transmission Date: 20080405
  Serious: Yes (Life-Threatening, Hospitalization)
  Sender: FDA-Public Use
  Company Number: EG-ASTRAZENECA-2006SE00437

PATIENT
  Age: 1008 Month
  Sex: Male
  Weight: 80 kg

DRUGS (14)
  1. LOSEC [Suspect]
     Indication: ULCER
     Route: 048
     Dates: start: 20041001, end: 20051217
  2. ZOLADEX [Concomitant]
     Indication: PROSTATE CANCER
     Dates: start: 20030101
  3. OXYBRAL [Concomitant]
     Indication: CARDIOVASCULAR DISORDER
     Dosage: TOTAL DAILY DOSE: 2 PILLS
     Route: 048
     Dates: start: 20030101
  4. BUMETANIDE [Concomitant]
  5. ALDACTONE [Concomitant]
  6. SOLUPRED [Concomitant]
  7. MISOTEC [Concomitant]
  8. DAKTARIN [Concomitant]
  9. MYCOSTATIN [Concomitant]
  10. AMARYL [Concomitant]
  11. LIDOPHAGE [Concomitant]
  12. VASTAREL [Concomitant]
  13. BIOVIT B12 [Concomitant]
  14. ALUMINUM HYDROXIDE AND MAGNESIUM TRISILICATE [Concomitant]

REACTIONS (9)
  - ANAEMIA MEGALOBLASTIC [None]
  - ASTHENIA [None]
  - CHROMATURIA [None]
  - DEPRESSION [None]
  - DIZZINESS [None]
  - DYSPNOEA [None]
  - HAEMOLYTIC ANAEMIA [None]
  - JAUNDICE [None]
  - POLYURIA [None]
